FAERS Safety Report 19270651 (Version 2)
Quarter: 2021Q3

REPORT INFORMATION
  Report Type: Report from Study
  Country: US (occurrence: US)
  Receive Date: 20210518
  Receipt Date: 20210916
  Transmission Date: 20211014
  Serious: Yes (Other)
  Sender: FDA-Public Use
  Company Number: US-TAKEDA-2021TUS030053

PATIENT
  Sex: Female
  Weight: 83.9 kg

DRUGS (26)
  1. NORMAL SALINE [Concomitant]
     Active Substance: SODIUM CHLORIDE
  2. PRIVIGEN [Concomitant]
     Active Substance: HUMAN IMMUNOGLOBULIN G
  3. HEPARIN [Concomitant]
     Active Substance: HEPARIN SODIUM
  4. CELEBREX [Concomitant]
     Active Substance: CELECOXIB
  5. HUMAN NORMAL IMMUNOGLOBULIN; LIQUID [Suspect]
     Active Substance: HUMAN IMMUNOGLOBULIN G
     Indication: IRIDOCYCLITIS
     Dosage: 55 GRAM, Q4WEEKS
     Route: 042
     Dates: start: 20210107
  6. DIPHENHYDRAMINE HCL [Concomitant]
     Active Substance: DIPHENHYDRAMINE HYDROCHLORIDE
  7. HUMIRA AC [Concomitant]
     Active Substance: ADALIMUMAB
  8. PANTOPRAZOLE SODIUM. [Concomitant]
     Active Substance: PANTOPRAZOLE SODIUM
  9. SODIUM CHLORIDE. [Concomitant]
     Active Substance: SODIUM CHLORIDE
  10. EPINEPHRINE. [Concomitant]
     Active Substance: EPINEPHRINE
  11. SOLU?MEDROL [Concomitant]
     Active Substance: METHYLPREDNISOLONE SODIUM SUCCINATE
  12. VITAMIN D3 [Concomitant]
     Active Substance: CHOLECALCIFEROL
  13. HUMAN NORMAL IMMUNOGLOBULIN; LIQUID [Suspect]
     Active Substance: HUMAN IMMUNOGLOBULIN G
     Indication: SCLERITIS
     Dosage: 100 GRAM
     Route: 042
     Dates: start: 20210107
  14. CLONAZEPAM. [Concomitant]
     Active Substance: CLONAZEPAM
  15. TYLENOL 8HR [Concomitant]
     Active Substance: ACETAMINOPHEN
  16. FOLIC ACID. [Concomitant]
     Active Substance: FOLIC ACID
  17. ACETAMINOPHEN. [Concomitant]
     Active Substance: ACETAMINOPHEN
  18. VALTREX [Concomitant]
     Active Substance: VALACYCLOVIR HYDROCHLORIDE
  19. LAMOTRIGINE. [Concomitant]
     Active Substance: LAMOTRIGINE
  20. IMURAN [Concomitant]
     Active Substance: AZATHIOPRINE
  21. BIOTIN [Concomitant]
     Active Substance: BIOTIN
  22. BUTOXYCAINE [Concomitant]
  23. BOTOX [Concomitant]
     Active Substance: ONABOTULINUMTOXINA
  24. VITAMIN C ACID [Concomitant]
     Active Substance: ASCORBIC ACID
  25. FLONASE ALLERGY RELIEF [Concomitant]
     Active Substance: FLUTICASONE PROPIONATE
  26. FLUOXETINE [Concomitant]
     Active Substance: FLUOXETINE HYDROCHLORIDE

REACTIONS (4)
  - Off label use [Unknown]
  - Iritis [Unknown]
  - Cellulitis [Unknown]
  - Candida infection [Unknown]
